FAERS Safety Report 6005083-3 (Version None)
Quarter: 2008Q4

REPORT INFORMATION
  Report Type: 
  Country: None (occurrence: None)
  Receive Date: 20081216
  Receipt Date: 20081212
  Transmission Date: 20090506
  Serious: Yes (Life-Threatening, Other)
  Sender: FDA-Public Use
  Company Number: PHHY2008BR31883

PATIENT
  Sex: Male
  Weight: 75 kg

DRUGS (8)
  1. FORASEQ [Suspect]
     Indication: EMPHYSEMA
     Dosage: TWO CAPSULE OF EACH COMPOUNG DAILY
  2. SPIRIVA [Concomitant]
     Indication: EMPHYSEMA
     Dosage: ONCE A DAY
  3. BAMIFIX [Concomitant]
     Indication: EMPHYSEMA
     Dosage: 1 TABLET/DAY
     Route: 048
  4. GABAPENTIN [Concomitant]
     Indication: CEREBROVASCULAR ACCIDENT
     Dosage: 2 TABLETS/DAY
     Route: 048
  5. OMEPRAZOLE [Concomitant]
     Dosage: 1 CAPSULE DAILY
     Route: 048
  6. ANCORON [Concomitant]
     Indication: ARRHYTHMIA
     Dosage: 1 TABLET/DAY
     Route: 048
  7. AAS [Concomitant]
     Indication: BLOOD DISORDER
     Dosage: 2 TABLETS/DAY
     Route: 048
  8. FERROUS SULFATE TAB [Concomitant]
     Indication: HYPOVITAMINOSIS
     Dosage: 5 ML, DAILY
     Route: 048
     Dates: start: 20060101

REACTIONS (13)
  - APPARENT LIFE THREATENING EVENT [None]
  - BEDRIDDEN [None]
  - CEREBROVASCULAR ACCIDENT [None]
  - DYSURIA [None]
  - FEELING ABNORMAL [None]
  - HYPOAESTHESIA [None]
  - NASOPHARYNGITIS [None]
  - PLEURAL EFFUSION [None]
  - PYREXIA [None]
  - SYNCOPE [None]
  - THORACIC CAVITY DRAINAGE [None]
  - URINARY TRACT INFECTION [None]
  - WEIGHT INCREASED [None]
